FAERS Safety Report 4768233-2 (Version None)
Quarter: 2005Q3

REPORT INFORMATION
  Report Type: 
  Country: None (occurrence: None)
  Receive Date: 20050914
  Receipt Date: 20050902
  Transmission Date: 20060218
  Serious: Yes (Hospitalization)
  Sender: FDA-Public Use
  Company Number: GB-BRISTOL-MYERS SQUIBB COMPANY-13098231

PATIENT
  Age: 46 Year
  Sex: Female

DRUGS (11)
  1. VINFLUNINE IV [Suspect]
     Indication: OVARIAN CANCER
     Dosage: 320 MG/M2 (595 MG) ON DAY 1 EVERY 3 WEEKS. THERAPY START DATE 15-OCT-02, LAST DOSE 07-NOV-02.
     Route: 042
     Dates: start: 20021107, end: 20021107
  2. CISPLATIN [Suspect]
     Dosage: 50 MG/M3 ON DAY 1-8 SINCE 29-NOV-02.
     Route: 042
     Dates: start: 20021129
  3. ETOPOSIDE [Suspect]
     Dosage: 50 MG/DAY DAY 1-15.
     Route: 048
     Dates: start: 20021129
  4. ATENOLOL [Concomitant]
     Route: 048
     Dates: start: 20021018
  5. ZOPICLONE [Concomitant]
     Route: 048
     Dates: start: 20020401
  6. SIMVASTATIN [Concomitant]
     Route: 048
     Dates: start: 20020901
  7. LANSOPRAZOLE [Concomitant]
     Route: 048
     Dates: start: 20020401
  8. DOCUSATE SODIUM [Concomitant]
     Route: 048
     Dates: start: 20021022, end: 20021201
  9. PARACETAMOL [Concomitant]
     Dosage: DOSAGE FORM = 1 TABLET
     Route: 048
     Dates: start: 20021018, end: 20021201
  10. METFORMIN HCL [Concomitant]
     Route: 048
     Dates: start: 20000101, end: 20021201
  11. ORAMORPH SR [Concomitant]
     Route: 048
     Dates: start: 20021021

REACTIONS (5)
  - CANDIDIASIS [None]
  - HAEMATURIA [None]
  - PROTEINURIA [None]
  - PYREXIA [None]
  - URINE ODOUR ABNORMAL [None]
